FAERS Safety Report 5455771-2 (Version None)
Quarter: 2007Q3

REPORT INFORMATION
  Report Type: 
  Country: None (occurrence: None)
  Receive Date: 20070918
  Receipt Date: 20070330
  Transmission Date: 20080115
  Serious: Yes (Other)
  Sender: FDA-Public Use
  Company Number: US-ASTRAZENECA-2006UW22563

PATIENT
  Sex: Female
  Weight: 95 kg

DRUGS (4)
  1. SEROQUEL [Suspect]
     Route: 048
     Dates: end: 20040101
  2. ABILIFY [Concomitant]
  3. HALDOL [Concomitant]
  4. ZYPREXA [Concomitant]

REACTIONS (3)
  - DIABETIC KETOACIDOSIS [None]
  - LIVER FUNCTION TEST ABNORMAL [None]
  - TYPE 2 DIABETES MELLITUS [None]
